FAERS Safety Report 13209594 (Version 1)
Quarter: 2017Q1

REPORT INFORMATION
  Report Type: Spontaneous
  Country: US (occurrence: US)
  Receive Date: 20170209
  Receipt Date: 20170209
  Transmission Date: 20170428
  Serious: No
  Sender: FDA-Public Use
  Company Number: US-ALLERGAN-1651195US

PATIENT
  Age: 71 Year
  Sex: Male

DRUGS (12)
  1. BOTOX [Suspect]
     Active Substance: ONABOTULINUMTOXINA
     Indication: EARLY ONSET PRIMARY DYSTONIA
     Dosage: 73.5 UNITS, SINGLE
     Route: 030
     Dates: start: 20150929, end: 20150929
  2. HYDROCHLORTHIAZID [Concomitant]
     Active Substance: HYDROCHLOROTHIAZIDE
     Dosage: 25 MG, QD
     Route: 048
  3. NEXIUM [Concomitant]
     Active Substance: ESOMEPRAZOLE MAGNESIUM
     Dosage: 40 MG, QD
     Route: 048
  4. ZANAFLEX [Concomitant]
     Active Substance: TIZANIDINE HYDROCHLORIDE
     Dosage: UNK
     Route: 048
  5. VENLAFAXINE HCL [Concomitant]
     Active Substance: VENLAFAXINE HYDROCHLORIDE
     Dosage: 150 MG, QD
     Route: 048
  6. CABERGOLINE. [Concomitant]
     Active Substance: CABERGOLINE
     Dosage: 0.5 MG, QD
     Route: 048
  7. CIALIS [Concomitant]
     Active Substance: TADALAFIL
     Dosage: 5 MG, QD
     Route: 048
  8. TRAZODONE HYDROCHLORIDE. [Concomitant]
     Active Substance: TRAZODONE HYDROCHLORIDE
     Dosage: 50 MG, QD
     Route: 048
  9. TESTOSTERONE. [Concomitant]
     Active Substance: TESTOSTERONE
  10. ZETIA [Concomitant]
     Active Substance: EZETIMIBE
     Indication: HYPERCHOLESTEROLAEMIA
     Dosage: 10 MG, QD
     Route: 048
  11. LEVOTHYROXINE. [Concomitant]
     Active Substance: LEVOTHYROXINE
     Dosage: 75 ?G, QD
     Route: 048
  12. TAMSULOSIN [Concomitant]
     Active Substance: TAMSULOSIN
     Dosage: 0.4 MG, QD
     Route: 048

REACTIONS (2)
  - Eyelid ptosis [Not Recovered/Not Resolved]
  - Off label use [Unknown]
